FAERS Safety Report 21321153 (Version 2)
Quarter: 2023Q1

REPORT INFORMATION
  Report Type: Spontaneous
  Country: CA (occurrence: CA)
  Receive Date: 20220912
  Receipt Date: 20230226
  Transmission Date: 20230417
  Serious: Yes (Life-Threatening, Hospitalization, Other)
  Sender: FDA-Public Use
  Company Number: CA-AMGEN-CANSP2022154769

PATIENT
  Age: 11 Year
  Sex: Female

DRUGS (4)
  1. ENBREL [Suspect]
     Active Substance: ETANERCEPT
     Indication: Product used for unknown indication
     Dosage: 0.6 MG/KG, UNK
     Route: 058
  2. ENBREL [Suspect]
     Active Substance: ETANERCEPT
     Dosage: 0.8 MG/KG (ON DAY 5)
     Route: 058
  3. METHYLPREDNISOLONE [Suspect]
     Active Substance: METHYLPREDNISOLONE
     Indication: Dermatitis infected
     Dosage: 30 MG/KG, SINGLE DOSE (ON DAY 1)
     Route: 042
  4. HUMAN IMMUNOGLOBULIN G [Suspect]
     Active Substance: HUMAN IMMUNOGLOBULIN G
     Indication: Mucosal erosion
     Dosage: 2 G/KG (DAY 3)
     Route: 065

REACTIONS (3)
  - Drug ineffective for unapproved indication [Recovered/Resolved]
  - Off label use [Unknown]
  - Drug interaction [Unknown]
